FAERS Safety Report 18954665 (Version 3)
Quarter: 2023Q1

REPORT INFORMATION
  Report Type: Other
  Country: US (occurrence: None)
  Receive Date: 20210301
  Receipt Date: 20230307
  Transmission Date: 20230417
  Serious: Yes (Hospitalization, Other)
  Sender: FDA-Public Use
  Company Number: US-ROCHE-2776541

PATIENT
  Age: 41 Year
  Sex: Female

DRUGS (23)
  1. XOLAIR [Suspect]
     Active Substance: OMALIZUMAB
     Indication: Asthma
     Dosage: INJECT 225 MG SQ EVERY 2 WEEKS
     Route: 058
  2. XOLAIR [Suspect]
     Active Substance: OMALIZUMAB
  3. XOLAIR [Suspect]
     Active Substance: OMALIZUMAB
     Indication: Idiopathic urticaria
     Route: 058
  4. XOLAIR [Suspect]
     Active Substance: OMALIZUMAB
  5. XOLAIR [Suspect]
     Active Substance: OMALIZUMAB
     Indication: Asthma
     Route: 058
     Dates: start: 20230219
  6. XOLAIR [Suspect]
     Active Substance: OMALIZUMAB
  7. ADVAIR HFA [Concomitant]
     Active Substance: FLUTICASONE PROPIONATE\SALMETEROL XINAFOATE
     Dosage: 1-2 PUFFS 2X PER DAY.EXHALE THROUGH NOSE.RINSE MOUTH OUT AFTER EACH USE
  8. BUDESONIDE [Concomitant]
     Active Substance: BUDESONIDE
  9. DYMISTA [Concomitant]
     Active Substance: AZELASTINE HYDROCHLORIDE\FLUTICASONE PROPIONATE
     Dosage: 2 SPRAYS/NOSTRILS QD AFTER SHOWER SALINE MIST PRIOR TO SHOWER BIN:610524 PCN:LOYALTY
  10. GENERESS FE [Concomitant]
     Active Substance: ETHINYL ESTRADIOL\NORETHINDRONE
  11. HYDROXYZINE HYDROCHLORIDE [Concomitant]
     Active Substance: HYDROXYZINE HYDROCHLORIDE
     Dosage: 1 TABLET AT 13 HOURS, 7 HOURS, AND 1 HOUR PRIOR TO IV CONTRAST
  12. KETOTIFEN [Concomitant]
     Active Substance: KETOTIFEN
     Dosage: AS PER MD
  13. MUPIROCIN [Concomitant]
     Active Substance: MUPIROCIN
     Dosage: APPLY AFFECTED AREA TWICE A DAY
  14. PROTONIX DR [Concomitant]
     Dosage: 1 HOUR PRIOR TO LARGEST MEAL OF DAY
  15. SINGULAIR [Concomitant]
     Active Substance: MONTELUKAST SODIUM
     Dosage: 1 EACH DAY
  16. SPIRIVA RESPIMAT [Concomitant]
     Active Substance: TIOTROPIUM BROMIDE
     Dosage: 1 PUFF BID. EXHALE THROUGH NOSE
  17. XOPENEX HFA [Concomitant]
     Active Substance: LEVALBUTEROL TARTRATE
     Dosage: 2 PUFFS QID PRN OR 30 MINUTES PRIOR TO SPORTS
  18. HYDROXYZINE HYDROCHLORIDE [Concomitant]
     Active Substance: HYDROXYZINE HYDROCHLORIDE
  19. PREDNISONE [Concomitant]
     Active Substance: PREDNISONE
     Dosage: 2 TAB QD
  20. SYNTHROID [Concomitant]
     Active Substance: LEVOTHYROXINE SODIUM
     Dosage: 1 TAB QD
  21. TOPAMAX [Concomitant]
     Active Substance: TOPIRAMATE
     Dosage: 3 TAB BID
  22. ZOFRAN [Concomitant]
     Active Substance: ONDANSETRON HYDROCHLORIDE
     Dosage: PRN
  23. ZYRTEC [Concomitant]
     Active Substance: CETIRIZINE HYDROCHLORIDE
     Dosage: 1 EACH AM AS NEEDED AND 1-2 EACH EVENING

REACTIONS (28)
  - Pneumonia [Unknown]
  - Neoplasm [Unknown]
  - Malignant mast cell neoplasm [Unknown]
  - Anaphylactic reaction [Unknown]
  - Haematopoietic neoplasm [Unknown]
  - Lymphatic system neoplasm [Unknown]
  - Off label use [Unknown]
  - Gaucher^s disease [Unknown]
  - Influenza [Unknown]
  - Dermatitis atopic [Unknown]
  - Methylmalonic aciduria [Unknown]
  - Rhinitis allergic [Unknown]
  - Bronchitis chronic [Unknown]
  - Anaemia vitamin B12 deficiency [Unknown]
  - Otitis media acute [Unknown]
  - Chronic sinusitis [Unknown]
  - Chronic obstructive pulmonary disease [Unknown]
  - Gastrointestinal inflammation [Unknown]
  - Gastrooesophageal reflux disease [Unknown]
  - Dyspnoea [Unknown]
  - Headache [Unknown]
  - Rhinitis [Unknown]
  - Mastocytosis [Unknown]
  - Colitis [Unknown]
  - Cerebrovascular accident [Unknown]
  - Mitral valve disease [Unknown]
  - Abdominal pain [Unknown]
  - Erythema [Unknown]
